FAERS Safety Report 6535827-3 (Version None)
Quarter: 2010Q1

REPORT INFORMATION
  Report Type: 
  Country: None (occurrence: None)
  Receive Date: 20100113
  Receipt Date: 20100112
  Transmission Date: 20100710
  Serious: Yes (Other)
  Sender: FDA-Public Use
  Company Number: ES-PFIZER INC-2010004147

PATIENT
  Age: 80 Year
  Sex: Male

DRUGS (5)
  1. CARDYL [Suspect]
     Dosage: 10 MG, 1X/DAY
     Route: 048
     Dates: start: 20080827
  2. PLAVIX [Suspect]
     Dosage: 75 MG, 1X/DAY
     Route: 048
     Dates: start: 20080827
  3. ADIRO [Concomitant]
     Dosage: 100 MG, 1X/DAY
     Route: 048
     Dates: start: 20060101
  4. PARAPRES [Concomitant]
     Dosage: 16 MG, 1X/DAY
     Route: 048
     Dates: start: 20080827
  5. SEGURIL [Concomitant]
     Dosage: 40 MG, 4X/DAY
     Route: 048
     Dates: start: 20080827

REACTIONS (4)
  - AGEUSIA [None]
  - ASTHENIA [None]
  - BREATH ODOUR [None]
  - MUSCLE SPASMS [None]
